FAERS Safety Report 9222561 (Version 1)
Quarter: 2013Q1

REPORT INFORMATION
  Report Type: Spontaneous
  Country: US (occurrence: None)
  Receive Date: 20120914
  Receipt Date: 20120914
  Transmission Date: 20140127
  Serious: Yes (Other)
  Sender: FDA-Public Use
  Company Number: JPI-P-013541

PATIENT
  Age: 49 Year
  Sex: Female
  Weight: 72.58 kg

DRUGS (12)
  1. XYREM [Suspect]
     Indication: CATAPLEXY
     Dosage: 2.25 GM, 2 IN 1 D
     Route: 048
     Dates: start: 20101218
  2. CLOPIDOGREL BISULFATE [Concomitant]
  3. ALPRAZOLAM [Concomitant]
  4. ROSUVASTATIN CALCIUM [Concomitant]
  5. TOPIRAMATE [Concomitant]
  6. METOPROLOL [Concomitant]
  7. BUDESONIDE AND FORMOTEROL FUMARATE DIHYDRATE [Concomitant]
  8. ALBUTEROL SULFATE [Concomitant]
  9. ARMODAFINIL [Concomitant]
  10. FAMOTIDINE [Concomitant]
  11. VENLAFAXINE HYDROCHLORIDE [Concomitant]
  12. NITROGLYCERIN [Concomitant]

REACTIONS (3)
  - Weight decreased [None]
  - Fall [None]
  - Muscular weakness [None]
